FAERS Safety Report 8071304-9 (Version None)
Quarter: 2012Q1

REPORT INFORMATION
  Report Type: 
  Country: None (occurrence: None)
  Receive Date: 20120125
  Receipt Date: 20120118
  Transmission Date: 20120608
  Serious: Yes (Hospitalization, Other)
  Sender: FDA-Public Use
  Company Number: PHHY2012BR004743

PATIENT
  Age: 57 Year
  Sex: Male

DRUGS (7)
  1. AMITRIPTYLINE HCL [Concomitant]
     Indication: DEPRESSIVE SYMPTOM
     Dosage: 2 DF, BID
  2. PRAMIPEXOLE DIHYCHLLORIDE [Concomitant]
  3. CARBIDOPA + LEVODOPA [Suspect]
     Indication: PARKINSON'S DISEASE
     Dosage: 12 TABLETS PER DAY
  4. CLONAZEPAM [Concomitant]
     Dosage: 2 MG, BEDTIME
  5. AMANTADINE HCL [Concomitant]
     Dosage: 100 MG, BID
  6. CARBIDOPA + LEVODOPA [Suspect]
     Dosage: 1 DF, QID
  7. BIPERIDEN HYDROCHLORIDE TAB [Concomitant]

REACTIONS (13)
  - DOPAMINE DYSREGULATION SYNDROME [None]
  - PSYCHOMOTOR HYPERACTIVITY [None]
  - RESTLESSNESS [None]
  - DYSARTHRIA [None]
  - ABNORMAL BEHAVIOUR [None]
  - ANXIETY [None]
  - AGGRESSION [None]
  - HYPERHIDROSIS [None]
  - HYPERSEXUALITY [None]
  - DRUG DEPENDENCE [None]
  - DYSKINESIA [None]
  - MUSCLE RIGIDITY [None]
  - DYSPHONIA [None]
